FAERS Safety Report 20405481 (Version 1)
Quarter: 2022Q1

REPORT INFORMATION
  Report Type: Spontaneous
  Country: US (occurrence: US)
  Receive Date: 20220131
  Receipt Date: 20220131
  Transmission Date: 20220423
  Serious: Yes (Hospitalization)
  Sender: FDA-Public Use
  Company Number: US-PROGENICS PHARMACEUTICALS/LANTHEUS HOLDINGS-LMI-2021-01018

PATIENT
  Sex: Male

DRUGS (2)
  1. AZEDRA [Suspect]
     Active Substance: IOBENGUANE I-131
     Indication: Product used for unknown indication
     Dosage: THERAPEUTIC DOSE
     Dates: start: 20210503, end: 20210503
  2. AZEDRA [Suspect]
     Active Substance: IOBENGUANE I-131
     Dosage: DOSIMETRIC DOSE
     Dates: start: 20210419, end: 20210419

REACTIONS (2)
  - Hospitalisation [Not Recovered/Not Resolved]
  - Platelet count decreased [Unknown]

NARRATIVE: CASE EVENT DATE: 20210823
